FAERS Safety Report 15624904 (Version 2)
Quarter: 2019Q1

REPORT INFORMATION
  Report Type: Spontaneous
  Country: US (occurrence: US)
  Receive Date: 20181116
  Receipt Date: 20190220
  Transmission Date: 20190417
  Serious: Yes (Other)
  Sender: FDA-Public Use
  Company Number: US-ASTRAZENECA-2018SF48871

PATIENT
  Age: 921 Month
  Sex: Female
  Weight: 63 kg

DRUGS (37)
  1. NEXIUM [Suspect]
     Active Substance: ESOMEPRAZOLE MAGNESIUM
     Indication: GASTROOESOPHAGEAL REFLUX DISEASE
     Route: 048
     Dates: start: 201202, end: 201501
  2. SODIUM BICARBONATE. [Concomitant]
     Active Substance: SODIUM BICARBONATE
     Indication: RENAL DISORDER
     Route: 048
     Dates: start: 20180608
  3. CIPROFLOXACIN. [Concomitant]
     Active Substance: CIPROFLOXACIN
     Route: 048
  4. AMLODIPINE BESYLATE. [Concomitant]
     Active Substance: AMLODIPINE BESYLATE
     Indication: BLOOD PRESSURE MEASUREMENT
     Dates: start: 2016
  5. PRILOSEC [Concomitant]
     Active Substance: OMEPRAZOLE MAGNESIUM
     Route: 048
  6. AMOXICILLIN. [Concomitant]
     Active Substance: AMOXICILLIN
     Route: 048
  7. CEFDINIR. [Concomitant]
     Active Substance: CEFDINIR
     Route: 048
  8. CLONAZEPAM. [Concomitant]
     Active Substance: CLONAZEPAM
     Route: 048
     Dates: start: 20150922
  9. NEXIUM [Suspect]
     Active Substance: ESOMEPRAZOLE MAGNESIUM
     Indication: GASTROOESOPHAGEAL REFLUX DISEASE
     Route: 048
     Dates: start: 2012, end: 2017
  10. VELTASSA [Concomitant]
     Active Substance: PATIROMER
  11. FLUTICASONE PROPIONATE. [Concomitant]
     Active Substance: FLUTICASONE PROPIONATE
     Indication: MULTIPLE ALLERGIES
     Dates: start: 2019
  12. CLONAZEPAM. [Concomitant]
     Active Substance: CLONAZEPAM
     Route: 048
  13. ONDANSETRON [Concomitant]
     Active Substance: ONDANSETRON
     Route: 048
  14. FLONASE [Concomitant]
     Active Substance: FLUTICASONE PROPIONATE
     Route: 048
  15. BIOTIN [Concomitant]
     Active Substance: BIOTIN
     Route: 048
  16. TRAZODONE [Concomitant]
     Active Substance: TRAZODONE HYDROCHLORIDE
     Route: 048
  17. FLUTICASONE PROPIONATE. [Concomitant]
     Active Substance: FLUTICASONE PROPIONATE
     Route: 048
  18. DULOXETINE. [Concomitant]
     Active Substance: DULOXETINE
     Route: 048
  19. CLONAZEPAM. [Concomitant]
     Active Substance: CLONAZEPAM
     Route: 048
  20. AMBIEN [Concomitant]
     Active Substance: ZOLPIDEM TARTRATE
     Route: 048
  21. METOPROLOL. [Concomitant]
     Active Substance: METOPROLOL
     Route: 048
     Dates: start: 20171031
  22. NAPROXEN. [Concomitant]
     Active Substance: NAPROXEN
     Route: 048
     Dates: start: 20090216
  23. ZOLPIDEM [Concomitant]
     Active Substance: ZOLPIDEM\ZOLPIDEM TARTRATE
     Route: 048
     Dates: start: 20170310
  24. DEXILANT [Suspect]
     Active Substance: DEXLANSOPRAZOLE
     Indication: GASTROOESOPHAGEAL REFLUX DISEASE
     Route: 065
     Dates: start: 2012, end: 2017
  25. DEXILANT [Suspect]
     Active Substance: DEXLANSOPRAZOLE
     Indication: GASTROOESOPHAGEAL REFLUX DISEASE
     Route: 065
     Dates: start: 201502, end: 201610
  26. PRISTIQ EXTENDED-RELEASE [Concomitant]
     Active Substance: DESVENLAFAXINE SUCCINATE
     Route: 048
     Dates: start: 2016, end: 2018
  27. ALPRAZOLAM. [Concomitant]
     Active Substance: ALPRAZOLAM
     Route: 048
  28. MULTI VITAMINS [Concomitant]
     Active Substance: VITAMINS
     Route: 048
  29. NEXIUM [Suspect]
     Active Substance: ESOMEPRAZOLE MAGNESIUM
     Indication: GASTROOESOPHAGEAL REFLUX DISEASE
     Route: 048
     Dates: start: 20120805
  30. DEXILANT [Suspect]
     Active Substance: DEXLANSOPRAZOLE
     Indication: GASTROOESOPHAGEAL REFLUX DISEASE
     Route: 048
  31. DESVENLAFAXINE. [Concomitant]
     Active Substance: DESVENLAFAXINE
     Indication: DEPRESSION
     Route: 048
     Dates: start: 201901
  32. MIRTAZAPINE. [Concomitant]
     Active Substance: MIRTAZAPINE
     Route: 048
  33. REMERON [Concomitant]
     Active Substance: MIRTAZAPINE
     Indication: BLOOD PRESSURE MEASUREMENT
     Dates: start: 2016
  34. HYDROCHLOROTHIAZIDE. [Concomitant]
     Active Substance: HYDROCHLOROTHIAZIDE
     Route: 048
  35. OXYCODONE/ACETAMINOPHEN [Concomitant]
     Active Substance: ACETAMINOPHEN\OXYCODONE HYDROCHLORIDE
     Route: 048
  36. TRAMADOL. [Concomitant]
     Active Substance: TRAMADOL
     Route: 048
  37. DICLOFENAC SODIUM. [Concomitant]
     Active Substance: DICLOFENAC SODIUM
     Route: 048
     Dates: start: 20131106

REACTIONS (1)
  - Chronic kidney disease [Not Recovered/Not Resolved]

NARRATIVE: CASE EVENT DATE: 201611
